FAERS Safety Report 8680848 (Version 2)
Quarter: 2012Q4

REPORT INFORMATION
  Report Type: 
  Country: FR (occurrence: FR)
  Receive Date: 20120724
  Receipt Date: 20121001
  Transmission Date: 20130627
  Serious: Yes (Death, Hospitalization)
  Sender: FDA-Public Use
  Company Number: PHHY2012FR062435

PATIENT
  Sex: Female

DRUGS (10)
  1. LOXEN [Suspect]
     Indication: HYPERTENSION
     Dates: start: 20120606
  2. PARACETAMOL [Suspect]
     Indication: PAIN
     Dates: start: 20120606, end: 20120612
  3. KEPPRA [Suspect]
     Indication: EPILEPSY
     Dosage: 500 mg, BID
     Dates: start: 20120605
  4. LOVENOX [Suspect]
     Dosage: UNK
     Route: 058
     Dates: start: 20120609
  5. PROPOFOL [Concomitant]
     Dates: start: 20120605, end: 20120607
  6. ESOMEPRAZOLE [Concomitant]
     Dates: start: 20120605, end: 20120609
  7. TRAMADOL [Concomitant]
     Dates: start: 20120606, end: 20120609
  8. TAHOR [Concomitant]
     Dates: start: 20120606, end: 20120609
  9. OGASTRO [Concomitant]
     Dates: start: 20120607, end: 20120609
  10. DIPRIVAN [Concomitant]
     Dates: start: 20120607, end: 20120609

REACTIONS (2)
  - Hypoxic-ischaemic encephalopathy [Fatal]
  - Hepatitis [Recovering/Resolving]
